FAERS Safety Report 8056349-7 (Version None)
Quarter: 2012Q1

REPORT INFORMATION
  Report Type: 
  Country: None (occurrence: None)
  Receive Date: 20120119
  Receipt Date: 20120109
  Transmission Date: 20120608
  Serious: Yes (Death)
  Sender: FDA-Public Use
  Company Number: US-ELI_LILLY_AND_COMPANY-US201112004711

PATIENT
  Sex: Female
  Weight: 45 kg

DRUGS (18)
  1. FORTEO [Suspect]
     Indication: OSTEOPOROSIS
     Dosage: 20 UG, QD
     Route: 058
     Dates: start: 20100919
  2. ADVAIR DISKUS 100/50 [Concomitant]
     Dosage: 300 UG, BID
  3. BROMPHENIRAMINE MALEATE [Concomitant]
     Dosage: UNK, PRN
     Route: 048
  4. FLUTICASONE PROPIONATE [Concomitant]
     Dosage: UNK, BID
     Route: 045
  5. GABAPENTIN [Concomitant]
     Dosage: 100 MG, EACH EVENING
     Route: 048
  6. LEFLUNOMIDE [Concomitant]
     Dosage: 20 UG, QD
     Route: 048
  7. MEGESTROL ACETATE [Concomitant]
     Dosage: UNK UNK, BID
     Route: 048
  8. EXTRA STRENGTH TYLENOL [Concomitant]
     Indication: PAIN
     Dosage: 500 MG, PRN
     Route: 048
  9. ENALAPRIL MALEATE [Concomitant]
     Dosage: 10 MG, QD
     Route: 048
  10. ENBREL [Concomitant]
     Dosage: UNK, WEEKLY (1/W)
     Route: 058
  11. PREDNISONE TAB [Concomitant]
     Dosage: 10 MG, QD
     Route: 048
  12. DEXTROMETHORPHAN HYDROBROMIDE [Concomitant]
     Dosage: UNK, PRN
     Route: 048
  13. LEVOTHYROXINE SODIUM [Concomitant]
     Dosage: 0.05 MG, QD
     Route: 048
  14. LIPITOR [Concomitant]
     Dosage: 10 MG, QD
     Route: 048
  15. PHENYLEPHRINE HCL [Concomitant]
     Dosage: UNK, PRN
     Route: 048
  16. ALBUTEROL [Concomitant]
     Dosage: UNK, TID
  17. ERGOCALCIFEROL [Concomitant]
     Dosage: 1.25 MG, WEEKLY (1/W)
     Route: 048
  18. OSCAL D                            /06435501/ [Concomitant]
     Dosage: 500 MG, BID
     Route: 048

REACTIONS (1)
  - RHEUMATOID LUNG [None]
